FAERS Safety Report 24033450 (Version 1)
Quarter: 2024Q3

REPORT INFORMATION
  Report Type: Spontaneous
  Country: US (occurrence: US)
  Receive Date: 20240701
  Receipt Date: 20240701
  Transmission Date: 20241017
  Serious: No
  Sender: UCB
  Company Number: US-UCBSA-2024001381

PATIENT
  Age: 39 Year
  Sex: Female

DRUGS (5)
  1. MIDAZOLAM [Suspect]
     Active Substance: MIDAZOLAM
     Indication: Sedative therapy
     Dosage: 1 MILLIGRAM
  2. MIDAZOLAM [Suspect]
     Active Substance: MIDAZOLAM
     Indication: Off label use
  3. BUPIVACAINE [Concomitant]
     Active Substance: BUPIVACAINE\BUPIVACAINE HYDROCHLORIDE
     Indication: Analgesic therapy
     Dosage: LIPOSOMAL, 0.25% (10 ML), BEFORE FEMORAL NERVE BLOCK ADMINISTRATION
  4. BUPIVACAINE [Concomitant]
     Active Substance: BUPIVACAINE\BUPIVACAINE HYDROCHLORIDE
     Dosage: 10 ML (133 MG)
  5. FENTANYL [Concomitant]
     Active Substance: FENTANYL\FENTANYL CITRATE
     Indication: Sedative therapy
     Dosage: 50 MICROGRAM

REACTIONS (1)
  - No adverse event [Unknown]
